FAERS Safety Report 20233187 (Version 1)
Quarter: 2021Q4

REPORT INFORMATION
  Report Type: Spontaneous
  Country: DE (occurrence: DE)
  Receive Date: 20211227
  Receipt Date: 20211227
  Transmission Date: 20220304
  Serious: Yes (Hospitalization)
  Sender: FDA-Public Use
  Company Number: DE-ADRED-07306-02

PATIENT
  Age: 79 Year
  Sex: Male

DRUGS (11)
  1. ASPIRIN [Suspect]
     Active Substance: ASPIRIN
     Dosage: 100 MILLIGRAM DAILY; 1-0-0-0
     Route: 048
  2. CANDESARTAN [Suspect]
     Active Substance: CANDESARTAN
     Dosage: 4 MILLIGRAM DAILY; 1-0-0-0
     Route: 048
  3. PANTOPRAZOLE [Suspect]
     Active Substance: PANTOPRAZOLE
     Dosage: 80 MILLIGRAM DAILY; 1-0-1-0
     Route: 048
  4. PHENPROCOUMON [Suspect]
     Active Substance: PHENPROCOUMON
     Dosage: 3 MG, ACCORDING TO INR
     Route: 048
  5. SITAGLIPTIN [Suspect]
     Active Substance: SITAGLIPTIN
     Dosage: 100 MILLIGRAM DAILY; 1-0-0-0
     Route: 048
  6. TORSEMIDE [Suspect]
     Active Substance: TORSEMIDE
     Dosage: 2 DOSAGE FORMS DAILY; 10 MG, 2-0-0-0
     Route: 048
  7. INSULIN LISPRO [Suspect]
     Active Substance: INSULIN LISPRO
     Dosage: 1 IU, 6-6-8-0,
     Route: 058
  8. EMPAGLIFLOZIN [Suspect]
     Active Substance: EMPAGLIFLOZIN
     Dosage: 10 MILLIGRAM DAILY; 1-0-0-0
     Route: 048
  9. INSULIN DETEMIR [Suspect]
     Active Substance: INSULIN DETEMIR
     Dosage: 1 IU, 0-0-0-16,
     Route: 058
  10. ENOXAPARIN [Concomitant]
     Active Substance: ENOXAPARIN
     Dosage: 16000 IU (INTERNATIONAL UNIT) DAILY; 1-0-1-0
     Route: 058
  11. ATORVASTATIN [Concomitant]
     Active Substance: ATORVASTATIN
     Dosage: 10 MILLIGRAM DAILY; 0-0-1-0
     Route: 048

REACTIONS (5)
  - General physical health deterioration [Unknown]
  - Anaemia [Unknown]
  - Haematochezia [Unknown]
  - Product monitoring error [Unknown]
  - Muscular weakness [Unknown]
